FAERS Safety Report 4588673-4 (Version None)
Quarter: 2005Q1

REPORT INFORMATION
  Report Type: 
  Country: None (occurrence: None)
  Receive Date: 20050222
  Receipt Date: 20041130
  Transmission Date: 20050727
  Serious: Yes (Other)
  Sender: FDA-Public Use
  Company Number: US-MERCK-0412USA00197

PATIENT
  Age: 50 Year
  Sex: Female
  Weight: 70 kg

DRUGS (6)
  1. FOSAMAX [Suspect]
     Indication: OSTEOPOROSIS
     Route: 048
  2. ZOLOFT [Concomitant]
     Route: 048
  3. ALLEGRA [Concomitant]
     Route: 048
  4. CALCIUM (UNSPECIFIED) AND VITAMIN D (UNSPECIFIED) [Concomitant]
     Route: 065
  5. ASPIRIN [Concomitant]
     Route: 048
  6. LESCOL [Concomitant]
     Route: 048
     Dates: start: 20041001

REACTIONS (7)
  - DYSPNOEA [None]
  - ERYTHEMA [None]
  - GENERALISED ERYTHEMA [None]
  - JOINT SWELLING [None]
  - OEDEMA PERIPHERAL [None]
  - SWELLING FACE [None]
  - THROAT TIGHTNESS [None]
